FAERS Safety Report 21347959 (Version 2)
Quarter: 2022Q4

REPORT INFORMATION
  Report Type: Report from Study
  Country: RO (occurrence: RO)
  Receive Date: 20220919
  Receipt Date: 20221114
  Transmission Date: 20230112
  Serious: Yes (Hospitalization, Other)
  Sender: FDA-Public Use
  Company Number: RO-CELLTRION INC.-2020RO023346

PATIENT

DRUGS (9)
  1. TRASTUZUMAB [Suspect]
     Active Substance: TRASTUZUMAB
     Indication: HER2 positive breast cancer
     Dosage: 600 MG EVERY 3 WEEKS
     Route: 042
     Dates: start: 20180818, end: 20190801
  2. TRASTUZUMAB [Suspect]
     Active Substance: TRASTUZUMAB
     Dosage: 600 MG EVERY 3 WEEKS
     Route: 042
     Dates: start: 20190813, end: 20190924
  3. CYCLOPHOSPHAMIDE [Suspect]
     Active Substance: CYCLOPHOSPHAMIDE
     Indication: HER2 positive breast cancer
     Dosage: 1000 MG, EVERY 3 WEEKS
     Route: 042
     Dates: start: 20180626, end: 20180828
  4. FLUOROURACIL [Suspect]
     Active Substance: FLUOROURACIL
     Indication: HER2 positive breast cancer
     Dosage: 1000 MG, EVERY 3 WEEKS
     Route: 042
     Dates: start: 20180626, end: 20180828
  5. DOCETAXEL [Suspect]
     Active Substance: DOCETAXEL
     Indication: HER2 positive breast cancer
     Dosage: 180 MG, EVERY 3 WEEKS
     Route: 042
     Dates: start: 20180918, end: 20181120
  6. EPIRUBICIN [Suspect]
     Active Substance: EPIRUBICIN
     Indication: HER2 positive breast cancer
     Dosage: 180 MG, EVERY 3 WEEKS
     Route: 042
     Dates: start: 20180626, end: 20180828
  7. INDAPAMIDE\PERINDOPRIL [Concomitant]
     Active Substance: INDAPAMIDE\PERINDOPRIL
     Dosage: ONGOING = CHECKED
  8. CARVEDILOL [Concomitant]
     Active Substance: CARVEDILOL
     Dosage: ONGOING = CHECKED
  9. EUTHYROX [Concomitant]
     Active Substance: LEVOTHYROXINE SODIUM
     Dosage: ONGOING = CHECKED

REACTIONS (2)
  - Angina pectoris [Recovered/Resolved]
  - Off label use [Unknown]

NARRATIVE: CASE EVENT DATE: 20190713
